FAERS Safety Report 17505637 (Version 2)
Quarter: 2020Q1

REPORT INFORMATION
  Report Type: Spontaneous
  Country: AT (occurrence: AT)
  Receive Date: 20200305
  Receipt Date: 20200319
  Transmission Date: 20200409
  Serious: Yes (Hospitalization)
  Sender: FDA-Public Use
  Company Number: AT-ELI_LILLY_AND_COMPANY-AT202002013269

PATIENT
  Age: 59 Year
  Sex: Female

DRUGS (7)
  1. ARIPIPRAZOLE. [Interacting]
     Active Substance: ARIPIPRAZOLE
  2. CANDESARTAN. [Interacting]
     Active Substance: CANDESARTAN
     Indication: HYPERTENSION
     Dosage: 31/12 MG,  DAILY
     Route: 065
  3. BISOPROLOL [Interacting]
     Active Substance: BISOPROLOL
     Indication: HYPERTENSION
     Dosage: 1.25 MG, DAILY
     Route: 065
  4. ARIPIPRAZOLE. [Interacting]
     Active Substance: ARIPIPRAZOLE
     Indication: DEPRESSION
     Dosage: 5 MG, DAILY
     Route: 065
     Dates: start: 2018
  5. DULOXETINE HYDROCHLORIDE. [Suspect]
     Active Substance: DULOXETINE HYDROCHLORIDE
     Indication: DEPRESSION
     Dosage: 30 MG, DAILY
     Route: 065
     Dates: start: 2014
  6. CANDESARTAN. [Interacting]
     Active Substance: CANDESARTAN
     Dosage: 32/12MG QD
  7. BISOPROLOL [Interacting]
     Active Substance: BISOPROLOL

REACTIONS (10)
  - Hypertelorism of orbit [Recovered/Resolved]
  - Eye pain [Recovered/Resolved]
  - Drug interaction [Unknown]
  - Myalgia [Recovered/Resolved]
  - Gait disturbance [Recovered/Resolved]
  - Mobility decreased [Recovered/Resolved]
  - Ophthalmoplegia [Recovered/Resolved]
  - Asthenia [Recovered/Resolved]
  - Antidepressant drug level increased [Unknown]
  - Musculoskeletal stiffness [Recovered/Resolved]
